FAERS Safety Report 7808525-3 (Version None)
Quarter: 2011Q4

REPORT INFORMATION
  Report Type: 
  Country: None (occurrence: None)
  Receive Date: 20111012
  Receipt Date: 20110930
  Transmission Date: 20120403
  Serious: Yes (Other)
  Sender: FDA-Public Use
  Company Number: US-JNJFOC-20110808545

PATIENT
  Sex: Male

DRUGS (8)
  1. PLAVIX [Concomitant]
     Route: 048
  2. LIPITOR [Concomitant]
     Route: 048
  3. DIOVAN [Concomitant]
     Route: 048
  4. ASPIRIN [Concomitant]
     Route: 048
  5. LYRICA [Concomitant]
     Route: 048
  6. STELARA [Suspect]
     Indication: PSORIASIS
     Route: 058
     Dates: start: 20101202, end: 20110505
  7. LORAZEPAM [Concomitant]
     Route: 048
  8. RITALIN [Concomitant]

REACTIONS (1)
  - MYELODYSPLASTIC SYNDROME [None]
